FAERS Safety Report 23724264 (Version 1)
Quarter: 2024Q2

REPORT INFORMATION
  Report Type: Spontaneous
  Country: US (occurrence: US)
  Receive Date: 20240409
  Receipt Date: 20240409
  Transmission Date: 20240716
  Serious: Yes (Other)
  Sender: FDA-Public Use
  Company Number: US-PURDUE PHARMA-USA-2024-0308891

PATIENT
  Age: 64 Year
  Sex: Male

DRUGS (4)
  1. OXYCONTIN [Suspect]
     Active Substance: OXYCODONE HYDROCHLORIDE
     Indication: Pain
     Dosage: 40 MILLIGRAM, TID (DAILY)
     Route: 048
  2. OXYCONTIN [Suspect]
     Active Substance: OXYCODONE HYDROCHLORIDE
     Dosage: 40 MILLIGRAM, BID (DAILY)
     Route: 048
  3. OXYCODONE HYDROCHLORIDE [Suspect]
     Active Substance: OXYCODONE HYDROCHLORIDE
     Indication: Breakthrough pain
     Dosage: 10 MILLIGRAM (105 PER MONTH)
     Route: 048
  4. OXYCODONE HYDROCHLORIDE [Suspect]
     Active Substance: OXYCODONE HYDROCHLORIDE
     Dosage: 10MG TWICE DAILY A  QUANTITY OF 60
     Route: 048

REACTIONS (8)
  - Drug dependence [Unknown]
  - Emotional distress [Not Recovered/Not Resolved]
  - Pain [Unknown]
  - Depression [Unknown]
  - Headache [Unknown]
  - Drug withdrawal syndrome [Not Recovered/Not Resolved]
  - Drug ineffective [Unknown]
  - Product availability issue [Unknown]
